APPROVED DRUG PRODUCT: GLYCEROL PHENYLBUTYRATE
Active Ingredient: GLYCEROL PHENYLBUTYRATE
Strength: 1.1GM/ML
Dosage Form/Route: LIQUID;ORAL
Application: A205742 | Product #001 | TE Code: AA
Applicant: PH HEALTH LTD
Approved: Dec 2, 2021 | RLD: No | RS: No | Type: RX

EXCLUSIVITY:
Code: PC | Date: Apr 15, 2026